FAERS Safety Report 12121289 (Version 1)
Quarter: 2016Q1

REPORT INFORMATION
  Report Type: Report from Study
  Country: NL (occurrence: NL)
  Receive Date: 20160226
  Receipt Date: 20160226
  Transmission Date: 20160526
  Serious: Yes (Hospitalization)
  Sender: FDA-Public Use
  Company Number: US-ASTRAZENECA-2016SE11777

PATIENT
  Age: 1 Year
  Sex: Female
  Weight: 10.1 kg

DRUGS (5)
  1. SYNAGIS [Suspect]
     Active Substance: PALIVIZUMAB
     Indication: BRONCHOPULMONARY DYSPLASIA
     Dosage: 100MG/1ML, PER BODY WEIGHT, MONTHLY, 146 MG
     Route: 030
     Dates: start: 20151230
  2. OXYGEN. [Concomitant]
     Active Substance: OXYGEN
     Route: 065
  3. SYNAGIS [Suspect]
     Active Substance: PALIVIZUMAB
     Indication: BRONCHOPULMONARY DYSPLASIA
     Dosage: 100MG/1ML, PER BODY WEIGHT, MONTHLY, 137 MG
     Route: 030
     Dates: start: 20151104, end: 20151104
  4. SYNAGIS [Suspect]
     Active Substance: PALIVIZUMAB
     Indication: BRONCHOPULMONARY DYSPLASIA
     Dosage: 100MG/1ML, PER BODY WEIGHT, MONTHLY, 143 MG
     Route: 030
     Dates: start: 20151202, end: 20151202
  5. NEXIUM [Concomitant]
     Active Substance: ESOMEPRAZOLE MAGNESIUM
     Route: 065

REACTIONS (1)
  - Pneumonia bacterial [Recovered/Resolved]

NARRATIVE: CASE EVENT DATE: 20160105
